FAERS Safety Report 17975709 (Version 1)
Quarter: 2020Q3

REPORT INFORMATION
  Report Type: Spontaneous
  Country: US (occurrence: US)
  Receive Date: 20200702
  Receipt Date: 20200702
  Transmission Date: 20201103
  Serious: Yes (Other)
  Sender: FDA-Public Use
  Company Number: US-NAPPMUNDI-USA-2020-0155246

PATIENT
  Sex: Male

DRUGS (1)
  1. OXYCONTIN [Suspect]
     Active Substance: OXYCODONE HYDROCHLORIDE
     Indication: PRODUCT USED FOR UNKNOWN INDICATION
     Route: 048

REACTIONS (11)
  - Anxiety [Unknown]
  - Theft [Unknown]
  - Illness [Unknown]
  - Delirium tremens [Unknown]
  - Anger [Unknown]
  - Tobacco user [Unknown]
  - Child abuse [Unknown]
  - Sleep disorder [Unknown]
  - Antisocial behaviour [Unknown]
  - Drug dependence [Unknown]
  - Imprisonment [Unknown]
